FAERS Safety Report 7734259-X (Version None)
Quarter: 2011Q3

REPORT INFORMATION
  Report Type: 
  Country: None (occurrence: None)
  Receive Date: 20110901
  Receipt Date: 20110830
  Transmission Date: 20111222
  Serious: Yes (Hospitalization)
  Sender: FDA-Public Use
  Company Number: ACO_23011_2011

PATIENT
  Age: 85 Year
  Sex: Male

DRUGS (16)
  1. TIZANIDINE HCL [Suspect]
     Indication: PRODUCT USED FOR UNKNOWN INDICATION
     Dosage: 2 MG, EVERY 8 HOURS, ORAL
     Route: 048
  2. PRAMIPEXOLE DIHYDROCHLORIDE [Concomitant]
  3. GUAIFENESIN/CODEINE (CODEINE PHOSPHATE, GUAIFENESIN) [Concomitant]
  4. CHLORPROMAZINE HYDROCHLORIDE [Concomitant]
  5. HYDROCODONE BITARTRATE + ACETAMINOPHEN [Concomitant]
  6. TRIMETHOPRIM + SULFAMETHOXAZOLE [Concomitant]
  7. FINASTERIDE [Concomitant]
  8. DICLOFENAC SODIUM [Concomitant]
  9. ACETAMINOPHEN [Concomitant]
  10. METFORMIN HCL [Concomitant]
  11. SIMVASTATIN [Concomitant]
  12. LIDOCAINE [Concomitant]
  13. THEOPHYLLINE [Concomitant]
  14. ONDANSETRON [Concomitant]
  15. CITALOPRAM HYDROBROMIDE [Concomitant]
  16. OMEPRAZOLE [Concomitant]

REACTIONS (7)
  - ASTHENIA [None]
  - BLOOD CREATININE INCREASED [None]
  - HYPOTENSION [None]
  - BLOOD UREA INCREASED [None]
  - BRADYCARDIA [None]
  - BLOOD SODIUM DECREASED [None]
  - BLOOD POTASSIUM INCREASED [None]
